FAERS Safety Report 6557624-5 (Version None)
Quarter: 2010Q1

REPORT INFORMATION
  Report Type: 
  Country: None (occurrence: None)
  Receive Date: 20100129
  Receipt Date: 20100121
  Transmission Date: 20100710
  Serious: Yes (Death)
  Sender: FDA-Public Use
  Company Number: ES-MPIJNJ-2010-00931

PATIENT

DRUGS (4)
  1. VELCADE [Suspect]
     Indication: MULTIPLE MYELOMA
     Dosage: UNK
     Route: 042
     Dates: start: 20091126, end: 20091126
  2. PREDNISONE [Suspect]
     Indication: MULTIPLE MYELOMA
     Dosage: UNK
     Dates: start: 20091126, end: 20091126
  3. MELPHALAN HYDROCHLORIDE [Suspect]
     Indication: MULTIPLE MYELOMA
     Dosage: UNK
     Dates: start: 20091126, end: 20091126
  4. ZOMETA [Concomitant]
     Indication: MULTIPLE MYELOMA
     Dosage: 4 MG, UNK
     Dates: start: 20091126

REACTIONS (2)
  - ACUTE PULMONARY OEDEMA [None]
  - ACUTE RESPIRATORY FAILURE [None]
